FAERS Safety Report 16235809 (Version 4)
Quarter: 2020Q2

REPORT INFORMATION
  Report Type: Report from Study
  Country: US (occurrence: US)
  Receive Date: 20190424
  Receipt Date: 20200408
  Transmission Date: 20200713
  Serious: No
  Sender: FDA-Public Use
  Company Number: PHEH2019US017169

PATIENT
  Age: 67 Year
  Sex: Female

DRUGS (1)
  1. COSENTYX [Suspect]
     Active Substance: SECUKINUMAB
     Indication: PRODUCT USED FOR UNKNOWN INDICATION
     Dosage: UNK
     Route: 065

REACTIONS (8)
  - Oropharyngeal pain [Unknown]
  - Upper limb fracture [Unknown]
  - Sinusitis [Unknown]
  - Condition aggravated [Unknown]
  - Pain [Unknown]
  - Hypersensitivity [Unknown]
  - Product dose omission [Unknown]
  - Device failure [Unknown]

NARRATIVE: CASE EVENT DATE: 201812
